FAERS Safety Report 6219316-1 (Version None)
Quarter: 2009Q2

REPORT INFORMATION
  Report Type: 
  Country: None (occurrence: None)
  Receive Date: 20090605
  Receipt Date: 20090528
  Transmission Date: 20091009
  Serious: Yes (Other)
  Sender: FDA-Public Use
  Company Number: 2009US001963

PATIENT
  Age: 47 Year
  Sex: Female

DRUGS (1)
  1. VESICARE [Suspect]
     Indication: DRUG USE FOR UNKNOWN INDICATION
     Dosage: TOTAL DOSE, ORAL
     Route: 048

REACTIONS (2)
  - LOSS OF CONSCIOUSNESS [None]
  - SYNCOPE [None]
